FAERS Safety Report 18706994 (Version 1)
Quarter: 2021Q1

REPORT INFORMATION
  Report Type: Report from Study
  Country: US (occurrence: US)
  Receive Date: 20210106
  Receipt Date: 20210106
  Transmission Date: 20210419
  Serious: Yes (Death)
  Sender: FDA-Public Use
  Company Number: US-MYLANLABS-2021M1000226

PATIENT

DRUGS (3)
  1. AMIODARONE [Suspect]
     Active Substance: AMIODARONE
     Indication: PRODUCT USED FOR UNKNOWN INDICATION
     Route: 065
  2. LEVOFLOXACIN. [Suspect]
     Active Substance: LEVOFLOXACIN
     Indication: PRODUCT USED FOR UNKNOWN INDICATION
     Route: 065
  3. CABOZANTINIB [Suspect]
     Active Substance: CABOZANTINIB
     Indication: NEOPLASM MALIGNANT
     Route: 065

REACTIONS (4)
  - Ventricular tachycardia [Fatal]
  - Sudden cardiac death [Fatal]
  - Torsade de pointes [Fatal]
  - Electrocardiogram QT prolonged [Fatal]
